FAERS Safety Report 4299892-9 (Version None)
Quarter: 2004Q1

REPORT INFORMATION
  Report Type: 
  Country: None (occurrence: None)
  Receive Date: 20040219
  Receipt Date: 20040219
  Transmission Date: 20041129
  Serious: Yes (Hospitalization)
  Sender: FDA-Public Use
  Company Number: None

PATIENT
  Age: 93 Year
  Sex: Male

DRUGS (7)
  1. LORAZEPAM [Suspect]
     Indication: CONVULSION
     Dosage: 2 PO QHS
     Route: 048
  2. BUMETANIDE [Concomitant]
  3. FINASTERIDE [Concomitant]
  4. FOSINOPRIL SODIUM [Concomitant]
  5. HALOPERIDOL [Concomitant]
  6. NIFEDIPINE [Concomitant]
  7. TERAZOSIN HCL [Concomitant]

REACTIONS (4)
  - CONVULSION [None]
  - DRUG WITHDRAWAL SYNDROME [None]
  - TREATMENT NONCOMPLIANCE [None]
  - TREMOR [None]
